FAERS Safety Report 9265406 (Version 1)
Quarter: 2013Q2

REPORT INFORMATION
  Report Type: Spontaneous
  Country: FR (occurrence: FR)
  Receive Date: 20130501
  Receipt Date: 20130501
  Transmission Date: 20140414
  Serious: Yes (Other)
  Sender: FDA-Public Use
  Company Number: FR-ASTRAZENECA-2013SE27796

PATIENT
  Age: 79 Year
  Sex: Male

DRUGS (2)
  1. BUDESONIDE [Suspect]
  2. AMIODARONE [Interacting]

REACTIONS (2)
  - Drug interaction [Unknown]
  - Pulmonary fibrosis [Unknown]
